FAERS Safety Report 23186588 (Version 1)
Quarter: 2023Q4

REPORT INFORMATION
  Report Type: Spontaneous
  Country: CN (occurrence: CN)
  Receive Date: 20231115
  Receipt Date: 20231115
  Transmission Date: 20240110
  Serious: Yes (Hospitalization, Other)
  Sender: FDA-Public Use
  Company Number: None

PATIENT
  Age: 49 Year
  Sex: Female
  Weight: 46 kg

DRUGS (4)
  1. CYCLOPHOSPHAMIDE [Suspect]
     Active Substance: CYCLOPHOSPHAMIDE
     Indication: Breast cancer female
     Dosage: 0.8 G ONE IN ONE DAY DILUTED WITH 0.9% SODIUM CHLORIDE 250 ML, TEMPORARILY IN THE MORNING
     Route: 041
     Dates: start: 20231007, end: 20231007
  2. SODIUM CHLORIDE [Suspect]
     Active Substance: SODIUM CHLORIDE
     Indication: Medication dilution
     Dosage: 250 ML USED TO DILUTE 0.8 G CYCLOPHOSPHAMIDE ONE TIME IN ONE DAY, DOSAGE FORM: INJECTION, TEMPORARIL
     Route: 041
     Dates: start: 20231007, end: 20231007
  3. DEXTROSE [Suspect]
     Active Substance: DEXTROSE\DEXTROSE MONOHYDRATE
     Indication: Medication dilution
     Dosage: 250 ML USED TO DILUTE 40 MG DOXORUBICIN HYDROCHLORIDE ONE TIME IN ONE DAY, DOSAGE FORM: INJECTION (U
     Route: 041
     Dates: start: 20231007, end: 20231007
  4. DOXORUBICIN HYDROCHLORIDE [Suspect]
     Active Substance: DOXORUBICIN HYDROCHLORIDE
     Indication: Breast cancer female
     Dosage: 40 MG ONE IN ONE DAY DILUTED WITH 250 ML OF 5% GLUCOSE (USED TEMPORARILY)
     Route: 041
     Dates: start: 20231007, end: 20231007

REACTIONS (1)
  - White blood cell count decreased [Recovering/Resolving]

NARRATIVE: CASE EVENT DATE: 20231030
